FAERS Safety Report 12632576 (Version 2)
Quarter: 2016Q3

REPORT INFORMATION
  Report Type: Spontaneous
  Country: US (occurrence: US)
  Receive Date: 20160808
  Receipt Date: 20160808
  Transmission Date: 20161109
  Serious: No
  Sender: FDA-Public Use
  Company Number: US-BEH-2015056086

PATIENT
  Age: 70 Year
  Sex: Female
  Weight: 67 kg

DRUGS (27)
  1. EPIPEN [Concomitant]
     Active Substance: EPINEPHRINE
  2. SERTRALINE [Concomitant]
     Active Substance: SERTRALINE HYDROCHLORIDE
  3. ATACAND [Concomitant]
     Active Substance: CANDESARTAN CILEXETIL
  4. PRAMIPEXOLE. [Concomitant]
     Active Substance: PRAMIPEXOLE
  5. LEVOTHYROXINE. [Concomitant]
     Active Substance: LEVOTHYROXINE
  6. VITAMIN D3 [Concomitant]
     Active Substance: CHOLECALCIFEROL
  7. KERATIN [Concomitant]
     Active Substance: KERATIN
  8. LABETALOL [Concomitant]
     Active Substance: LABETALOL\LABETALOL HYDROCHLORIDE
  9. GABAPENTIN. [Concomitant]
     Active Substance: GABAPENTIN
  10. NEXIUM [Concomitant]
     Active Substance: ESOMEPRAZOLE MAGNESIUM
  11. GUMMIES CHILDREN MULTIVITAMIN [Concomitant]
  12. PRAVASTATIN. [Concomitant]
     Active Substance: PRAVASTATIN
  13. HIZENTRA [Suspect]
     Active Substance: HUMAN IMMUNOGLOBULIN G
     Indication: IMMUNODEFICIENCY COMMON VARIABLE
     Route: 058
  14. COCONUT OIL [Concomitant]
     Active Substance: COCONUT OIL
  15. DIPHENHYDRAMINE. [Concomitant]
     Active Substance: DIPHENHYDRAMINE
  16. CALCIUM [Concomitant]
     Active Substance: CALCIUM
  17. PROBIOTIC [Concomitant]
     Active Substance: PROBIOTICS NOS
  18. VITAMIN C WITH ROSE HIPS [Concomitant]
  19. LIDOCAINE. [Concomitant]
     Active Substance: LIDOCAINE
  20. TYLENOL EX-STR [Concomitant]
  21. VICODIN [Concomitant]
     Active Substance: ACETAMINOPHEN\HYDROCODONE BITARTRATE
  22. VANCOMYCIN [Concomitant]
     Active Substance: VANCOMYCIN
  23. ZETIA [Concomitant]
     Active Substance: EZETIMIBE
  24. HIZENTRA [Suspect]
     Active Substance: HUMAN IMMUNOGLOBULIN G
     Route: 058
  25. LIDOCAINE/PRILOCAINE [Concomitant]
     Active Substance: LIDOCAINE\PRILOCAINE
  26. ASPIRIN. [Concomitant]
     Active Substance: ASPIRIN
  27. BETAMETHASONE. [Concomitant]
     Active Substance: BETAMETHASONE

REACTIONS (1)
  - Sinusitis [Unknown]

NARRATIVE: CASE EVENT DATE: 20151015
